FAERS Safety Report 6253557-2 (Version None)
Quarter: 2009Q3

REPORT INFORMATION
  Report Type: 
  Country: None (occurrence: None)
  Receive Date: 20090701
  Receipt Date: 20090622
  Transmission Date: 20100115
  Serious: Yes (Other)
  Sender: FDA-Public Use
  Company Number: JP-ELI_LILLY_AND_COMPANY-JP200906000285

PATIENT
  Age: 26 Year
  Sex: Female

DRUGS (4)
  1. ZYPREXA [Suspect]
     Indication: SCHIZOPHRENIA
     Route: 048
  2. ZYPREXA [Suspect]
     Dosage: 20 MG, DAILY (1/D)
     Route: 048
     Dates: start: 20090422, end: 20090525
  3. DEPAKENE [Concomitant]
     Indication: SCHIZOPHRENIA
     Dosage: 400 MG, DAILY (1/D)
     Route: 048
     Dates: start: 20090422, end: 20090525
  4. SERENACE [Concomitant]
     Indication: SCHIZOPHRENIA
     Dosage: 2 MG, DAILY (1/D)
     Route: 048
     Dates: start: 20090422

REACTIONS (4)
  - GRANULOCYTE COUNT DECREASED [None]
  - HYPERTHERMIA [None]
  - LIVER DISORDER [None]
  - LIVER FUNCTION TEST ABNORMAL [None]
